FAERS Safety Report 5634176-5 (Version None)
Quarter: 2008Q1

REPORT INFORMATION
  Report Type: 
  Country: None (occurrence: None)
  Receive Date: 20080221
  Receipt Date: 20080221
  Transmission Date: 20080703
  Serious: Yes (Hospitalization)
  Sender: FDA-Public Use
  Company Number: None

PATIENT
  Age: 77 Year
  Sex: Male

DRUGS (9)
  1. AMIODARONE HCL [Suspect]
     Indication: CARDIOMYOPATHY
     Dosage: 200MG PO BID
     Route: 048
     Dates: start: 20071001
  2. ALBUTEROL [Concomitant]
  3. ASPIRIN [Concomitant]
  4. IMDUR [Concomitant]
  5. LASIX [Concomitant]
  6. LIPITOR [Concomitant]
  7. LISINOPRIL [Concomitant]
  8. PLAVIX [Concomitant]
  9. SPIRIVA [Concomitant]

REACTIONS (5)
  - DYSPNOEA [None]
  - INFLAMMATION [None]
  - OXYGEN SATURATION DECREASED [None]
  - SCAN GALLIUM ABNORMAL [None]
  - THERAPEUTIC RESPONSE DECREASED [None]
